FAERS Safety Report 13254553 (Version 1)
Quarter: 2017Q1

REPORT INFORMATION
  Report Type: Spontaneous
  Country: US (occurrence: US)
  Receive Date: 20170221
  Receipt Date: 20170221
  Transmission Date: 20170428
  Serious: No
  Sender: FDA-Public Use
  Company Number: US-AUROBINDO-AUR-APL-2016-12328

PATIENT
  Sex: Female

DRUGS (2)
  1. AMOXICILLIN POWDER FOR ORAL SUSPENSION USP 400 MG/5 ML [Suspect]
     Active Substance: AMOXICILLIN
     Dosage: 1 TEASPOONFUL IN MORNING
     Route: 048
     Dates: start: 20160929
  2. AMOXICILLIN POWDER FOR ORAL SUSPENSION USP 400 MG/5 ML [Suspect]
     Active Substance: AMOXICILLIN
     Indication: UPPER RESPIRATORY TRACT INFECTION
     Dosage: 2 TEASPOONFUL IN EVENING
     Route: 048
     Dates: start: 20160928, end: 20160928

REACTIONS (1)
  - Chest discomfort [Not Recovered/Not Resolved]

NARRATIVE: CASE EVENT DATE: 20160928
